FAERS Safety Report 6679226-2 (Version None)
Quarter: 2010Q2

REPORT INFORMATION
  Report Type: 
  Country: None (occurrence: None)
  Receive Date: 20100409
  Receipt Date: 20100310
  Transmission Date: 20101027
  Serious: Yes (Hospitalization)
  Sender: FDA-Public Use
  Company Number: 20100109

PATIENT
  Age: 82 Year
  Sex: Male
  Weight: 63.5036 kg

DRUGS (6)
  1. VENOFER [Suspect]
     Indication: IRON DEFICIENCY ANAEMIA
     Dosage: 200 MG X 1 PER DAYS; 20 MG/ML
     Dates: start: 20100301, end: 20100301
  2. DIGOXIN [Concomitant]
  3. THEOPHYLLINE [Concomitant]
  4. TIOTROPIUM INHALATION, OROPHARYNGEAL [Concomitant]
  5. ALBUTEROL SULATE [Concomitant]
  6. ALENDRONATE SODIUM [Concomitant]

REACTIONS (1)
  - ACUTE MYOCARDIAL INFARCTION [None]
